FAERS Safety Report 25507606 (Version 3)
Quarter: 2025Q4

REPORT INFORMATION
  Report Type: Spontaneous
  Country: US (occurrence: US)
  Receive Date: 20250703
  Receipt Date: 20251030
  Transmission Date: 20260117
  Serious: Yes (Death, Hospitalization, Other)
  Sender: CATALYST PHARMA
  Company Number: US-CATALYST PHARMACEUTICALS, INC-US-CATA-25-00931

PATIENT
  Sex: Male
  Weight: 86.621 kg

DRUGS (8)
  1. FIRDAPSE [Suspect]
     Active Substance: AMIFAMPRIDINE PHOSPHATE
     Indication: Myasthenic syndrome
     Dosage: ONE TABLET THREE TIMES A DAY (TITRATION: 10 MG BY MOUTH 3 TIMES A DAY FOR 3 DAYS THEN INCREASED BY 5
     Route: 048
     Dates: start: 20220811, end: 2022
  2. FIRDAPSE [Suspect]
     Active Substance: AMIFAMPRIDINE PHOSPHATE
     Dosage: TWO TABLETS (20 MG) FOUR TIMES A DAY (80 MG A DAY)
     Route: 048
     Dates: start: 20221107, end: 20251001
  3. ALPRAZOLAM [Concomitant]
     Active Substance: ALPRAZOLAM
     Indication: Anxiety
     Dosage: 0.25 MG AS NEEDED
     Route: 065
  4. ELIQUIS [Concomitant]
     Active Substance: APIXABAN
     Indication: Thrombosis prophylaxis
     Dosage: 5 MG TWICE DAILY
     Route: 065
  5. ESOMEPRAZOLE [Concomitant]
     Active Substance: ESOMEPRAZOLE
     Indication: Gastrooesophageal reflux disease
     Dosage: 20 MG
     Route: 065
  6. LEVOTHYROXINE [Concomitant]
     Active Substance: LEVOTHYROXINE
     Indication: Hypothyroidism
     Dosage: 50 MCG
     Route: 065
  7. NATURAL VEGETAL LAXATIVE [Concomitant]
     Indication: Constipation
     Dosage: DAILY
     Route: 065
  8. OLANZAPINE-FLUOXETINE [Concomitant]
     Indication: Depression
     Dosage: 12-25 MG DAILY
     Route: 065

REACTIONS (4)
  - Leukaemia [Fatal]
  - Seizure [Not Recovered/Not Resolved]
  - Lymphadenopathy [Not Recovered/Not Resolved]
  - Pyrexia [Not Recovered/Not Resolved]
